FAERS Safety Report 18656513 (Version 1)
Quarter: 2020Q4

REPORT INFORMATION
  Report Type: Spontaneous
  Country: ES (occurrence: ES)
  Receive Date: 20201223
  Receipt Date: 20201223
  Transmission Date: 20210114
  Serious: Yes (Death, Other)
  Sender: FDA-Public Use
  Company Number: ES-AUROBINDO-AUR-APL-2020-062408

PATIENT
  Age: 13 Year
  Sex: Female

DRUGS (3)
  1. VINCRISTINE SULFATE. [Suspect]
     Active Substance: VINCRISTINE SULFATE
     Indication: MALIGNANT MESENCHYMOMA
     Dosage: 1.5 MILLIGRAM/SQ. METER, DAILY (1.5 MG/M2/DAY, DAYS +1 AND +8)
     Route: 065
  2. TEMOZOLOMIDE. [Suspect]
     Active Substance: TEMOZOLOMIDE
     Indication: MALIGNANT MESENCHYMOMA
     Dosage: 150 MILLIGRAM/SQ. METER, DAILY (150 MG/M2/DAYX5DAYS)
     Route: 065
  3. IRINOTECAN [Suspect]
     Active Substance: IRINOTECAN
     Indication: MALIGNANT MESENCHYMOMA
     Dosage: 50 MILLIGRAM/SQ. METER, DAILY (50 MG/M2/DAYX5 DAYS)
     Route: 065

REACTIONS (2)
  - Neoplasm progression [Fatal]
  - Off label use [Unknown]
